FAERS Safety Report 8120146-4 (Version None)
Quarter: 2012Q1

REPORT INFORMATION
  Report Type: 
  Country: None (occurrence: None)
  Receive Date: 20120207
  Receipt Date: 20120206
  Transmission Date: 20120608
  Serious: No
  Sender: FDA-Public Use
  Company Number: US-BAYER-2012-012007

PATIENT
  Age: 47 Year
  Sex: Female

DRUGS (1)
  1. BEYAZ [Suspect]
     Indication: CONTRACEPTION
     Dosage: UNK
     Route: 048
     Dates: start: 20110301

REACTIONS (2)
  - LIBIDO DECREASED [None]
  - ALOPECIA [None]
